FAERS Safety Report 8169429-2 (Version None)
Quarter: 2012Q1

REPORT INFORMATION
  Report Type: 
  Country: None (occurrence: None)
  Receive Date: 20120228
  Receipt Date: 20120221
  Transmission Date: 20120608
  Serious: Yes (Hospitalization, Other)
  Sender: FDA-Public Use
  Company Number: US-AMGEN-USASP2012009810

PATIENT
  Age: 53 Year
  Sex: Male

DRUGS (10)
  1. SUCRALFATE [Concomitant]
     Dosage: UNK
  2. PHENYTOIN [Concomitant]
     Dosage: UNK
  3. FOLIC ACID [Concomitant]
     Dosage: UNK
  4. ASPIRIN [Concomitant]
     Dosage: UNK
  5. VITAMIN D [Concomitant]
     Dosage: UNK
  6. COLACE [Concomitant]
     Dosage: UNK
  7. PROCRIT [Suspect]
     Indication: ANAEMIA
     Dosage: 3000 IU, QWK
     Route: 058
     Dates: start: 20080917
  8. PREDNISONE [Concomitant]
     Dosage: UNK
  9. PANTOPRAZOLE [Concomitant]
     Dosage: UNK
  10. REGLAN [Concomitant]
     Dosage: UNK

REACTIONS (3)
  - GASTROINTESTINAL HAEMORRHAGE [None]
  - ANAEMIA [None]
  - HAEMOGLOBIN DECREASED [None]
